FAERS Safety Report 12750695 (Version 1)
Quarter: 2016Q3

REPORT INFORMATION
  Report Type: Spontaneous
  Country: US (occurrence: US)
  Receive Date: 20160916
  Receipt Date: 20160916
  Transmission Date: 20161109
  Serious: No
  Sender: FDA-Public Use
  Company Number: US-ACTELION-A-US2016-142064

PATIENT
  Age: 70 Year
  Sex: Male

DRUGS (4)
  1. ADCIRCA [Concomitant]
     Active Substance: TADALAFIL
  2. OPSUMIT [Suspect]
     Active Substance: MACITENTAN
     Indication: PULMONARY ARTERIAL HYPERTENSION
     Dosage: 10 MG, UNK
     Route: 048
     Dates: start: 20160830
  3. REMODULIN [Concomitant]
     Active Substance: TREPROSTINIL
  4. COUMADIN [Concomitant]
     Active Substance: WARFARIN SODIUM

REACTIONS (1)
  - Condition aggravated [Unknown]
